FAERS Safety Report 10790883 (Version 1)
Quarter: 2015Q1

REPORT INFORMATION
  Report Type: Spontaneous
  Country: US (occurrence: US)
  Receive Date: 20150212
  Receipt Date: 20150212
  Transmission Date: 20150721
  Serious: No
  Sender: FDA-Public Use
  Company Number: US-TARO-2014TAR00643

PATIENT
  Age: 71 Year
  Sex: Male
  Weight: 82.54 kg

DRUGS (3)
  1. ZOCOR [Concomitant]
     Active Substance: SIMVASTATIN
     Dosage: 20 MG, 1X/DAY
  2. FLUOCINONIDE TOPICAL SOLUTION USP 0.05% [Suspect]
     Active Substance: FLUOCINONIDE
     Indication: SKIN DISORDER
     Dosage: UNK UNK, 2X/MONTH
     Route: 061
     Dates: start: 201401
  3. NEXIUM [Concomitant]
     Active Substance: ESOMEPRAZOLE MAGNESIUM
     Dosage: 40 MG, AS NEEDED

REACTIONS (2)
  - Blood glucose increased [Not Recovered/Not Resolved]
  - Glucose tolerance increased [Not Recovered/Not Resolved]

NARRATIVE: CASE EVENT DATE: 201404
